FAERS Safety Report 7374618-0 (Version None)
Quarter: 2011Q1

REPORT INFORMATION
  Report Type: 
  Country: None (occurrence: None)
  Receive Date: 20110325
  Receipt Date: 20100607
  Transmission Date: 20110831
  Serious: No
  Sender: FDA-Public Use
  Company Number: US-MYLANLABS-2010S1008380

PATIENT
  Age: 69 Year
  Sex: Female

DRUGS (19)
  1. FENTANYL-100 [Suspect]
     Indication: SPINAL COLUMN STENOSIS
     Route: 062
     Dates: start: 20100308, end: 20100406
  2. FENTANYL-100 [Suspect]
     Dosage: CHANGED Q3D
     Route: 062
     Dates: start: 20100407, end: 20100510
  3. FENTANYL-100 [Suspect]
     Dosage: Q72H
     Route: 062
     Dates: start: 20100511
  4. FENTANYL-100 [Suspect]
     Dosage: Q72H
     Route: 062
     Dates: start: 20100511
  5. REMICADE [Concomitant]
  6. FENTANYL-100 [Suspect]
     Indication: PAIN
     Route: 062
     Dates: start: 20100308, end: 20100406
  7. FENTANYL-100 [Suspect]
     Dosage: CHANGED Q3D
     Route: 062
     Dates: start: 20100407, end: 20100510
  8. FENTANYL-100 [Suspect]
     Dosage: Q72H
     Route: 062
     Dates: start: 20100511
  9. FOLIC ACID [Concomitant]
  10. FENTANYL-100 [Suspect]
     Dosage: CHANGED Q3D
     Route: 062
     Dates: start: 20100407, end: 20100510
  11. LEFLUNOMIDE [Concomitant]
  12. AMITRIPTYLINE [Concomitant]
  13. FENTANYL-100 [Suspect]
     Indication: OSTEOSCLEROSIS
     Route: 062
     Dates: start: 20100308, end: 20100406
  14. FENTANYL-100 [Suspect]
     Dosage: CHANGED Q3D
     Route: 062
     Dates: start: 20100407, end: 20100510
  15. MULTI-VITAMIN [Concomitant]
  16. FENTANYL-100 [Suspect]
     Indication: BACK PAIN
     Route: 062
     Dates: start: 20100308, end: 20100406
  17. METHOTREXATE [Concomitant]
  18. FENTANYL-100 [Suspect]
     Dosage: Q72H
     Route: 062
     Dates: start: 20100511
  19. LISINOPRIL [Concomitant]

REACTIONS (7)
  - IRRITABILITY [None]
  - DRUG INEFFECTIVE [None]
  - RESTLESSNESS [None]
  - PAIN [None]
  - FEELING ABNORMAL [None]
  - FORMICATION [None]
  - INSOMNIA [None]
